APPROVED DRUG PRODUCT: CEFDINIR
Active Ingredient: CEFDINIR
Strength: 300MG
Dosage Form/Route: CAPSULE;ORAL
Application: A065418 | Product #001 | TE Code: AB
Applicant: ANDA REPOSITORY LLC
Approved: Jul 18, 2007 | RLD: No | RS: No | Type: RX